FAERS Safety Report 20406676 (Version 1)
Quarter: 2022Q1

REPORT INFORMATION
  Report Type: Spontaneous
  Country: US (occurrence: US)
  Receive Date: 20220131
  Receipt Date: 20220131
  Transmission Date: 20220423
  Serious: No
  Sender: FDA-Public Use
  Company Number: US-PERRIGO-21US030798

PATIENT
  Sex: Female
  Weight: 77.098 kg

DRUGS (2)
  1. HALOBETASOL PROPIONATE [Suspect]
     Active Substance: HALOBETASOL PROPIONATE
     Indication: Eczema
     Dosage: ONE APPLICATION, PRN
     Route: 061
     Dates: start: 2015
  2. HALOBETASOL PROPIONATE [Suspect]
     Active Substance: HALOBETASOL PROPIONATE
     Dosage: ONE APPLICATION, PRN
     Route: 061
     Dates: start: 2018, end: 2018

REACTIONS (3)
  - Drug ineffective [Unknown]
  - Expired product administered [Not Recovered/Not Resolved]
  - Prescription drug used without a prescription [Not Recovered/Not Resolved]

NARRATIVE: CASE EVENT DATE: 20150101
